FAERS Safety Report 8026251-5 (Version None)
Quarter: 2012Q1

REPORT INFORMATION
  Report Type: 
  Country: None (occurrence: None)
  Receive Date: 20120105
  Receipt Date: 20111115
  Transmission Date: 20120608
  Serious: No
  Sender: FDA-Public Use
  Company Number: US-ABBOTT-11P-163-0874226-00

PATIENT
  Sex: Female

DRUGS (2)
  1. SYNTHROID [Suspect]
  2. SYNTHROID [Suspect]
     Indication: HYPOTHYROIDISM

REACTIONS (3)
  - NAUSEA [None]
  - TABLET PHYSICAL ISSUE [None]
  - ORAL DISCOMFORT [None]
